FAERS Safety Report 5087812-9 (Version None)
Quarter: 2006Q3

REPORT INFORMATION
  Report Type: 
  Country: None (occurrence: None)
  Receive Date: 20060824
  Receipt Date: 20060224
  Transmission Date: 20061208
  Serious: Yes (Disabling, Other)
  Sender: FDA-Public Use
  Company Number: PHNU2006DE01122

PATIENT
  Age: 74 Year
  Sex: Female
  Weight: 50 kg

DRUGS (3)
  1. FEMARA [Concomitant]
     Indication: BREAST CANCER
     Dosage: 2.5 MG, QD
     Route: 048
     Dates: start: 20010801
  2. RADIOTHERAPY [Concomitant]
     Indication: RADIOTHERAPY TO BREAST
     Dosage: 50 GY
     Route: 065
  3. ZOMETA [Suspect]
     Indication: BREAST CANCER METASTATIC
     Dosage: 4 MG, QMO
     Dates: start: 20010901, end: 20051201

REACTIONS (3)
  - DENTAL PROSTHESIS USER [None]
  - DENTAL TREATMENT [None]
  - OSTEONECROSIS [None]
